FAERS Safety Report 18576194 (Version 1)
Quarter: 2020Q4

REPORT INFORMATION
  Report Type: Spontaneous
  Country: US (occurrence: US)
  Receive Date: 20201203
  Receipt Date: 20201203
  Transmission Date: 20210114
  Serious: No
  Sender: FDA-Public Use
  Company Number: US-BLUEPRINT MEDICINES CORPORATION-SP-US-2020-001242

PATIENT
  Sex: Male

DRUGS (1)
  1. AYVAKIT [Suspect]
     Active Substance: AVAPRITINIB
     Indication: GASTROINTESTINAL STROMAL TUMOUR
     Route: 048
     Dates: start: 20200330

REACTIONS (7)
  - Musculoskeletal discomfort [Unknown]
  - Pain of skin [Unknown]
  - Pain [Unknown]
  - Limb discomfort [Unknown]
  - Myalgia [Unknown]
  - Feeling cold [Unknown]
  - Hypoaesthesia [Unknown]
